FAERS Safety Report 5843453-4 (Version None)
Quarter: 2008Q3

REPORT INFORMATION
  Report Type: 
  Country: None (occurrence: None)
  Receive Date: 20080813
  Receipt Date: 20080807
  Transmission Date: 20090109
  Serious: Yes (Other)
  Sender: FDA-Public Use
  Company Number: GB-AVENTIS-200817508GDDC

PATIENT
  Age: 83 Year
  Sex: Female

DRUGS (3)
  1. RIFAMPICIN [Suspect]
     Route: 048
     Dates: start: 20080428, end: 20080510
  2. RIFAMPICIN [Suspect]
     Route: 048
     Dates: start: 20080709, end: 20080709
  3. ETHAMBUTOL HCL [Concomitant]
     Route: 048
     Dates: start: 20080428, end: 20080510

REACTIONS (4)
  - FATIGUE [None]
  - PARAESTHESIA [None]
  - PRURITUS [None]
  - SYNCOPE [None]
